FAERS Safety Report 15626838 (Version 3)
Quarter: 2019Q4

REPORT INFORMATION
  Report Type: Report from Study
  Country: BE (occurrence: BE)
  Receive Date: 20181116
  Receipt Date: 20191227
  Transmission Date: 20200122
  Serious: Yes (Hospitalization)
  Sender: FDA-Public Use
  Company Number: BE-TEVA-2018-BE-975617

PATIENT
  Age: 69 Year
  Sex: Female
  Weight: 67 kg

DRUGS (11)
  1. BISOPROLOL [Concomitant]
     Active Substance: BISOPROLOL
  2. APOCARD [Concomitant]
     Active Substance: FLECAINIDE ACETATE
  3. CALEYX [Suspect]
     Active Substance: DOXORUBICIN HYDROCHLORIDE
     Indication: OVARIAN CANCER
     Dosage: 30 MG/M2, CYCLIC (EVERY 4 WEEKS)
     Route: 042
     Dates: start: 20180903, end: 20180903
  4. FARLETUZUMAB [Suspect]
     Active Substance: FARLETUZUMAB
     Indication: OVARIAN CANCER
     Dosage: BLINDED [10 MG/KG OR PLACEBO (1 IN 1 WK)]
     Route: 042
     Dates: start: 20180903, end: 20180910
  5. DULCOLA [Concomitant]
  6. BLINDED THERAPY [Suspect]
     Active Substance: INVESTIGATIONAL PRODUCT
     Indication: OVARIAN CANCER
     Dosage: 5 MG/KG, 1 IN 1 WK
     Route: 042
     Dates: start: 20180917
  7. LIXIANA [Concomitant]
     Active Substance: EDOXABAN TOSYLATE
  8. ZOLPIDEM [Concomitant]
     Active Substance: ZOLPIDEM TARTRATE
  9. DAFALGAN [Concomitant]
     Active Substance: ACETAMINOPHEN
  10. CARBOPLATIN. [Suspect]
     Active Substance: CARBOPLATIN
     Indication: OVARIAN CANCER
     Dosage: 5 AUC, CYCLIC
     Route: 042
     Dates: start: 20180903, end: 20180910
  11. BLINDED THERAPY [Suspect]
     Active Substance: INVESTIGATIONAL PRODUCT
     Dosage: 10 MG/KG, CYCLIC (ONCE WEEKLY FOR 2 WEEKS OF TREATMENT)
     Route: 042
     Dates: start: 20180903, end: 20180910

REACTIONS (1)
  - Febrile neutropenia [Recovered/Resolved]

NARRATIVE: CASE EVENT DATE: 20180917
